FAERS Safety Report 8264493 (Version 5)
Quarter: 2012Q4

REPORT INFORMATION
  Report Type: Report from Study
  Country: DE (occurrence: DE)
  Receive Date: 20111128
  Receipt Date: 20121203
  Transmission Date: 20130627
  Serious: Yes (Other)
  Sender: FDA-Public Use
  Company Number: DE-UCBSA-045856

PATIENT
  Sex: Female
  Weight: 96 kg

DRUGS (10)
  1. CIMZIA [Suspect]
     Indication: RHEUMATOID ARTHRITIS
     Dosage: NO. OF DOSES RECEIVED: 6 INTRAMUSCULARLY
     Route: 058
     Dates: start: 20111005, end: 20111115
  2. PREDNISOLONE [Concomitant]
     Indication: RHEUMATOID ARTHRITIS
     Route: 048
     Dates: start: 20100428
  3. FOLIC ACID [Concomitant]
     Indication: RHEUMATOID ARTHRITIS
     Route: 048
     Dates: start: 20100428
  4. METHOTREXATE [Concomitant]
     Indication: RHEUMATOID ARTHRITIS
     Route: 048
     Dates: start: 20100428
  5. CALCIMAGON D3 [Concomitant]
     Indication: RHEUMATOID ARTHRITIS
     Dosage: UNKNOWN DOSE
     Route: 048
     Dates: start: 201004
  6. IBUPROFEN [Concomitant]
     Indication: RHEUMATOID ARTHRITIS
     Route: 048
     Dates: start: 201004
  7. DILTIAZEM [Concomitant]
     Indication: HYPERTENSION
     Route: 048
     Dates: start: 1996
  8. THYRONAJOD [Concomitant]
     Indication: AUTOIMMUNE THYROIDITIS
     Route: 048
     Dates: start: 1996
  9. TORASEMID [Concomitant]
     Indication: HYPERTENSION
     Dosage: UNKNOWN DOSE
     Route: 048
     Dates: start: 1996
  10. PANTOZOL [Concomitant]
     Indication: GASTROINTESTINAL DISORDER THERAPY
     Route: 048
     Dates: start: 201004

REACTIONS (1)
  - Pustular psoriasis [Recovering/Resolving]
